FAERS Safety Report 8052685-9 (Version None)
Quarter: 2012Q1

REPORT INFORMATION
  Report Type: 
  Country: None (occurrence: None)
  Receive Date: 20120118
  Receipt Date: 20120118
  Transmission Date: 20120608
  Serious: Yes (Other)
  Sender: FDA-Public Use
  Company Number: None

PATIENT
  Age: 66 Year
  Sex: Male
  Weight: 113.39 kg

DRUGS (1)
  1. ABILIFY [Suspect]
     Indication: BIPOLAR DISORDER
     Dosage: 10MG
     Route: 048
     Dates: start: 20101101, end: 20110801

REACTIONS (4)
  - DEPRESSION [None]
  - MANIA [None]
  - PARKINSON'S DISEASE [None]
  - PSYCHOTIC DISORDER [None]
